FAERS Safety Report 8214667-3 (Version None)
Quarter: 2012Q1

REPORT INFORMATION
  Report Type: 
  Country: None (occurrence: None)
  Receive Date: 20120229
  Receipt Date: 20110815
  Transmission Date: 20120608
  Serious: Yes (Hospitalization, Other)
  Sender: FDA-Public Use
  Company Number: US-JNJFOC-20110800570

PATIENT
  Sex: Female

DRUGS (8)
  1. VICODIN [Suspect]
     Indication: PAIN
     Dosage: 750 MG
     Dates: start: 20070101
  2. SOMA [Suspect]
     Indication: PAIN
     Dosage: 350 MG
     Dates: start: 20070101
  3. CELEXA [Suspect]
     Indication: DEPRESSION
     Dosage: 10 MG
     Dates: start: 20090101
  4. UNKNOWN MEDICATION (ALL OTHER THERAPEUTIC PRODUCTS) [Suspect]
     Indication: BLOOD PRESSURE ABNORMAL
     Dosage: 10/12.5 MG
     Dates: start: 20070101
  5. MOTRIN  TAB [Suspect]
     Indication: PAIN
     Dosage: 800 MG
     Dates: start: 20070101
  6. ACETYLSALICYLIC ACID (ACETYLSALICYLIC ACID) UNSPECIFIED [Suspect]
     Indication: PRODUCT USED FOR UNKNOWN INDICATION
     Dosage: 81 MG
     Dates: start: 20070101
  7. LYRICA [Suspect]
     Indication: FIBROMYALGIA
     Dosage: 75 MG, 2 IN 1 DAY
     Dates: start: 20090101
  8. XANAX [Suspect]
     Indication: RELAXATION THERAPY
     Dosage: 10 MG, 2 IN 1 DAY
     Dates: start: 20090101

REACTIONS (6)
  - GASTRIC DISORDER [None]
  - VISUAL ACUITY REDUCED [None]
  - DRUG INEFFECTIVE [None]
  - HYPOAESTHESIA [None]
  - TRANSIENT ISCHAEMIC ATTACK [None]
  - HEADACHE [None]
